FAERS Safety Report 20665627 (Version 2)
Quarter: 2022Q2

REPORT INFORMATION
  Report Type: Report from Study
  Country: US (occurrence: US)
  Receive Date: 20220402
  Receipt Date: 20220610
  Transmission Date: 20220721
  Serious: Yes (Disabling)
  Sender: FDA-Public Use
  Company Number: US-NOVARTISTESTPH-NVSC2022US072285

PATIENT
  Age: 19 Year
  Sex: Male

DRUGS (1)
  1. ADAKVEO [Suspect]
     Active Substance: CRIZANLIZUMAB-TMCA
     Indication: Sickle cell disease
     Dosage: UNK
     Route: 042

REACTIONS (3)
  - Infusion related reaction [Recovered/Resolved]
  - Pain [Recovered/Resolved]
  - Sensitivity to weather change [Unknown]

NARRATIVE: CASE EVENT DATE: 20220301
